FAERS Safety Report 16761012 (Version 1)
Quarter: 2019Q3

REPORT INFORMATION
  Report Type: Spontaneous
  Country: CA (occurrence: CA)
  Receive Date: 20190830
  Receipt Date: 20190830
  Transmission Date: 20191005
  Serious: Yes (Other)
  Sender: FDA-Public Use
  Company Number: CA-PFIZER INC-2019373567

PATIENT
  Age: 60 Year
  Sex: Female

DRUGS (1)
  1. ZOLEDRONIC ACID [Suspect]
     Active Substance: ZOLEDRONIC ACID
     Indication: OSTEOPOROSIS
     Dosage: UNK, (EVERY 1 YEAR)
     Route: 042

REACTIONS (7)
  - Malaise [Recovered/Resolved]
  - Influenza like illness [Recovered/Resolved]
  - Anal incontinence [Recovered/Resolved]
  - Hypersomnia [Recovered/Resolved]
  - Eating disorder [Recovered/Resolved]
  - Movement disorder [Recovered/Resolved]
  - Delirium [Recovered/Resolved]
